FAERS Safety Report 8763365 (Version 3)
Quarter: 2014Q2

REPORT INFORMATION
  Report Type: Spontaneous
  Country: US (occurrence: US)
  Receive Date: 20120831
  Receipt Date: 20140609
  Transmission Date: 20141212
  Serious: Yes (Hospitalization, Other)
  Sender: FDA-Public Use
  Company Number: US-009507513-1207USA010113

PATIENT
  Sex: Female
  Weight: 86.62 kg

DRUGS (5)
  1. FOSAMAX [Suspect]
     Indication: OSTEOPOROSIS
     Dosage: 70 MG, QW
     Route: 048
  2. FOSAMAX [Suspect]
     Indication: OSTEOPENIA
     Dosage: 10 MG, UNK
     Route: 048
  3. FOSAMAX [Suspect]
     Indication: OSTEOPOROSIS
     Dosage: 70 MG, UNK
     Route: 048
     Dates: end: 201006
  4. FOSAMAX [Suspect]
     Indication: OSTEOPENIA
  5. ALENDRONATE SODIUM [Suspect]
     Dosage: 70 MG, QW
     Route: 048
     Dates: end: 201006

REACTIONS (38)
  - Intramedullary rod insertion [Unknown]
  - Renal failure chronic [Not Recovered/Not Resolved]
  - Blindness unilateral [Unknown]
  - Knee arthroplasty [Unknown]
  - Knee arthroplasty [Unknown]
  - Femur fracture [Unknown]
  - Femur fracture [Unknown]
  - Spinal compression fracture [Unknown]
  - Low turnover osteopathy [Unknown]
  - Osteoarthritis [Unknown]
  - Meniscus injury [Unknown]
  - Alpha haemolytic streptococcal infection [Unknown]
  - Knee operation [Unknown]
  - Arthritis [Unknown]
  - Scoliosis [Unknown]
  - Kyphosis [Unknown]
  - Hyporeflexia [Unknown]
  - Meniscus injury [Unknown]
  - Medical observation [Unknown]
  - Adverse drug reaction [Recovering/Resolving]
  - Adenotonsillectomy [Unknown]
  - Bunion operation [Unknown]
  - Hypertension [Unknown]
  - Stress fracture [Unknown]
  - Hypothyroidism [Unknown]
  - Bone lesion [Unknown]
  - Injury [Unknown]
  - Eye operation [Unknown]
  - Knee operation [Unknown]
  - Skeletal injury [Unknown]
  - Pulmonary mass [Unknown]
  - Granuloma [Unknown]
  - Insomnia [Unknown]
  - Muscular weakness [Unknown]
  - Joint swelling [Unknown]
  - Asthenia [Unknown]
  - Arthralgia [Unknown]
  - Nausea [Unknown]
